FAERS Safety Report 21335731 (Version 1)
Quarter: 2022Q3

REPORT INFORMATION
  Report Type: Report from Study
  Country: US (occurrence: US)
  Receive Date: 20220915
  Receipt Date: 20220915
  Transmission Date: 20221027
  Serious: Yes (Hospitalization)
  Sender: FDA-Public Use
  Company Number: US-NOVARTISTESTPH-NVSC2022US207125

PATIENT
  Sex: Female

DRUGS (3)
  1. GLIVEC [Suspect]
     Active Substance: IMATINIB MESYLATE
     Indication: Chronic myeloid leukaemia
     Dosage: 100 MG, QD (THAT START DATE WAS 1ST FILL),1 QD BACK IN 2018
     Route: 048
     Dates: start: 20180314
  2. GLIVEC [Suspect]
     Active Substance: IMATINIB MESYLATE
     Dosage: 100 MG  (1 QD BACK IN 2018, MAY 2019 IT WAS CHANGED TO 2 QD)
     Route: 048
  3. GLIVEC [Suspect]
     Active Substance: IMATINIB MESYLATE
     Dosage: 100 MG  (1 QD BACK IN 2018, MAY 2019 IT WAS CHANGED TO 2 QD)
     Route: 048

REACTIONS (1)
  - Dehydration [Recovered/Resolved with Sequelae]
